FAERS Safety Report 9247773 (Version 2)
Quarter: 2013Q3

REPORT INFORMATION
  Report Type: Report from Study
  Country: JP (occurrence: JP)
  Receive Date: 20130423
  Receipt Date: 20130724
  Transmission Date: 20140515
  Serious: Yes (Death)
  Sender: FDA-Public Use
  Company Number: JP-SANOFI-AVENTIS-2013SA041549

PATIENT
  Age: 88 Year
  Sex: Male
  Weight: 45 kg

DRUGS (22)
  1. INSULIN GLARGINE [Suspect]
     Indication: TYPE 2 DIABETES MELLITUS
     Dosage: DOSE:8 UNIT(S)
     Route: 058
     Dates: start: 20121228, end: 20121231
  2. INSULIN GLARGINE [Suspect]
     Indication: TYPE 2 DIABETES MELLITUS
     Dosage: DOSE:8 UNIT(S)
     Route: 058
     Dates: start: 20120829, end: 20120829
  3. INSULIN GLARGINE [Suspect]
     Indication: TYPE 2 DIABETES MELLITUS
     Dosage: DOSE:4 UNIT(S)
     Route: 058
     Dates: start: 20120830, end: 20120830
  4. INSULIN GLARGINE [Suspect]
     Indication: TYPE 2 DIABETES MELLITUS
     Dosage: DOSE:6 UNIT(S)
     Route: 058
     Dates: start: 20120831, end: 20120903
  5. INSULIN GLARGINE [Suspect]
     Indication: TYPE 2 DIABETES MELLITUS
     Dosage: DOSE:7 UNIT(S)
     Route: 058
     Dates: start: 20120904
  6. INSULIN GLARGINE [Suspect]
     Indication: TYPE 2 DIABETES MELLITUS
     Dosage: DOSE:8 UNIT(S)
     Route: 058
     Dates: start: 20121025, end: 20121125
  7. INSULIN GLARGINE [Suspect]
     Indication: TYPE 2 DIABETES MELLITUS
     Dosage: DOSE:9 UNIT(S)
     Route: 058
     Dates: start: 20121126, end: 20121227
  8. SOLOSTAR [Suspect]
     Indication: DEVICE THERAPY
     Dates: start: 20120829, end: 20120829
  9. SOLOSTAR [Suspect]
     Indication: DEVICE THERAPY
     Dates: start: 20120830, end: 20120830
  10. SOLOSTAR [Suspect]
     Indication: DEVICE THERAPY
     Dates: start: 20120831, end: 20120903
  11. SOLOSTAR [Suspect]
     Indication: DEVICE THERAPY
     Dates: start: 20120904
  12. SOLOSTAR [Suspect]
     Indication: DEVICE THERAPY
     Dates: start: 20121025, end: 20121125
  13. SOLOSTAR [Suspect]
     Indication: DEVICE THERAPY
     Dates: start: 20121126, end: 20121227
  14. SOLOSTAR [Suspect]
     Indication: DEVICE THERAPY
     Dates: start: 20121228, end: 20121231
  15. SEIBULE [Concomitant]
     Indication: TYPE 2 DIABETES MELLITUS
     Route: 048
     Dates: end: 20130104
  16. GLUFAST [Concomitant]
     Indication: TYPE 2 DIABETES MELLITUS
     Route: 048
     Dates: end: 20130104
  17. EQUA [Concomitant]
  18. JANUVIA [Concomitant]
     Indication: TYPE 2 DIABETES MELLITUS
     Route: 048
     Dates: start: 20120829, end: 20130104
  19. EXFORGE [Concomitant]
     Route: 048
     Dates: end: 20130105
  20. ZYLORIC [Concomitant]
     Route: 048
     Dates: end: 20130105
  21. KREMEZIN [Concomitant]
     Route: 048
     Dates: end: 20130105
  22. CALCIUM POLYSTYRENE SULFONATE [Concomitant]
     Route: 048
     Dates: end: 20130105

REACTIONS (1)
  - Disseminated intravascular coagulation [Fatal]
